FAERS Safety Report 6059661-6 (Version None)
Quarter: 2009Q1

REPORT INFORMATION
  Report Type: 
  Country: None (occurrence: None)
  Receive Date: 20090130
  Receipt Date: 20090119
  Transmission Date: 20090719
  Serious: Yes (Other)
  Sender: FDA-Public Use
  Company Number: FR-ROCHE-609514

PATIENT
  Sex: Female

DRUGS (4)
  1. BONIVA [Suspect]
     Route: 048
     Dates: start: 20080901
  2. ACETAMINOPHEN [Concomitant]
     Dosage: INDICATION REPORTED AS PAIN OF ONE ARM
     Dates: start: 20080701
  3. SIMVASTATIN [Concomitant]
     Dosage: RECEIVED FOR MORE THAN ONE YEAR
  4. FOSAMAX [Concomitant]

REACTIONS (4)
  - C-REACTIVE PROTEIN INCREASED [None]
  - HEPATIC FUNCTION ABNORMAL [None]
  - MUSCLE SPASMS [None]
  - PYREXIA [None]
